FAERS Safety Report 6695049-2 (Version None)
Quarter: 2010Q2

REPORT INFORMATION
  Report Type: 
  Country: None (occurrence: None)
  Receive Date: 20100423
  Receipt Date: 20100318
  Transmission Date: 20101027
  Serious: Yes (Other)
  Sender: FDA-Public Use
  Company Number: PHHY2010US24999

PATIENT
  Sex: Male
  Weight: 19.501 kg

DRUGS (2)
  1. ELIDEL [Suspect]
     Indication: DERMATITIS ATOPIC
     Dosage: ONCE DAILY, AS NEEDED
     Route: 061
     Dates: end: 20041201
  2. ZYRTEC [Concomitant]

REACTIONS (1)
  - MOLLUSCUM CONTAGIOSUM [None]
